FAERS Safety Report 5074768-8 (Version None)
Quarter: 2006Q3

REPORT INFORMATION
  Report Type: 
  Country: None (occurrence: None)
  Receive Date: 20060807
  Receipt Date: 20060724
  Transmission Date: 20061208
  Serious: Yes (Disabling)
  Sender: FDA-Public Use
  Company Number: 2006-01479

PATIENT
  Sex: Male

DRUGS (5)
  1. VELCADE [Suspect]
     Indication: MULTIPLE MYELOMA
     Dosage: 2.60 MG, INTRAVENOUS
     Route: 042
     Dates: start: 20060219, end: 20060424
  2. DEXAMETHASONE [Suspect]
     Indication: MULTIPLE MYELOMA
     Dosage: 40.00 MG, ORAL
     Route: 048
     Dates: start: 20060119, end: 20060424
  3. KAPAKE (CODEINE PHOSPHATE, PARACETAMOL) [Concomitant]
  4. CLODRONATE DISODIUM (CLODRONATE DISODIUM) [Concomitant]
  5. CYCLIZINE (CYCLIZINE) [Concomitant]

REACTIONS (4)
  - HERPES ZOSTER [None]
  - MONONEUROPATHY MULTIPLEX [None]
  - MUSCLE ATROPHY [None]
  - MUSCULAR WEAKNESS [None]
